FAERS Safety Report 6599716-0 (Version None)
Quarter: 2010Q1

REPORT INFORMATION
  Report Type: 
  Country: None (occurrence: None)
  Receive Date: 20100212
  Receipt Date: 20100126
  Transmission Date: 20100710
  Serious: No
  Sender: FDA-Public Use
  Company Number: 2010-00084

PATIENT
  Sex: Male

DRUGS (1)
  1. ZICAM COLD REMEDY GEL SWABS [Suspect]
     Dosage: Q4HRS, 3-4 DAYS
     Dates: start: 20100101

REACTIONS (2)
  - AGEUSIA [None]
  - ANOSMIA [None]
